FAERS Safety Report 9517312 (Version 1)
Quarter: 2013Q3

REPORT INFORMATION
  Report Type: Spontaneous
  Country: US (occurrence: US)
  Receive Date: 20130911
  Receipt Date: 20130911
  Transmission Date: 20140515
  Serious: No
  Sender: FDA-Public Use
  Company Number: US-ASTRAZENECA-2013SE62373

PATIENT
  Age: 62 Year
  Sex: Female
  Weight: 63.5 kg

DRUGS (3)
  1. SYMBICORT [Suspect]
     Indication: CHRONIC OBSTRUCTIVE PULMONARY DISEASE
     Dosage: 160/4.5, 2 PUFFS BID
     Route: 055
  2. ANOTHER MEDICATION [Suspect]
     Route: 065
  3. XANAX [Concomitant]
     Indication: RESTLESSNESS
     Route: 048
     Dates: start: 201308

REACTIONS (6)
  - Dyspnoea [Unknown]
  - Vomiting [Unknown]
  - Disease recurrence [Unknown]
  - Restlessness [Unknown]
  - Insomnia [Unknown]
  - Drug dose omission [Unknown]
